FAERS Safety Report 6385280-8 (Version None)
Quarter: 2009Q4

REPORT INFORMATION
  Report Type: 
  Country: None (occurrence: None)
  Receive Date: 20091002
  Receipt Date: 20080815
  Transmission Date: 20100525
  Serious: No
  Sender: FDA-Public Use
  Company Number: US-ASTRAZENECA-2008UW16675

PATIENT
  Sex: Female

DRUGS (4)
  1. ARIMIDEX [Suspect]
     Route: 048
  2. HERCEPTIN [Concomitant]
  3. THYROID TAB [Concomitant]
  4. PRILOSEC [Concomitant]
     Route: 048

REACTIONS (1)
  - NAIL DISORDER [None]
